FAERS Safety Report 5624836-4 (Version None)
Quarter: 2008Q1

REPORT INFORMATION
  Report Type: 
  Country: None (occurrence: None)
  Receive Date: 20080213
  Receipt Date: 20080208
  Transmission Date: 20080703
  Serious: Yes (Other)
  Sender: FDA-Public Use
  Company Number: JP-ALLERGAN-0801588US

PATIENT
  Sex: Female

DRUGS (10)
  1. ALESION TABLET [Suspect]
     Indication: RHINITIS ALLERGIC
     Dosage: 20 MG, QD
     Route: 048
     Dates: start: 20071025, end: 20071025
  2. SYMMETREL [Concomitant]
     Indication: PARKINSON'S DISEASE
     Dosage: 100 MG, QD
     Route: 048
  3. CARBIDOPA AND LEVODOPA [Concomitant]
     Indication: PARKINSON'S DISEASE
     Dosage: 300 MG, QD
     Route: 048
  4. ARICEPT [Concomitant]
     Indication: PARKINSON'S DISEASE
     Dosage: 5 MG, QD
     Route: 048
     Dates: end: 20071109
  5. NORVASC [Concomitant]
     Indication: HYPERTENSION
     Dosage: 5 MG, QD
     Route: 048
  6. NU LOTAN [Concomitant]
     Indication: HYPERTENSION
     Dosage: 25 MG, QD
     Route: 048
     Dates: start: 20071025
  7. SLO-BID [Concomitant]
     Indication: ASTHMA
     Dosage: 200 MG, QD
     Route: 048
     Dates: start: 20071025
  8. ONON [Concomitant]
     Indication: ASTHMA
     Route: 048
     Dates: start: 20071025
  9. HOKUNALIN [Concomitant]
     Indication: ASTHMA
     Dosage: 2 MG, QD
     Route: 062
     Dates: start: 20071025
  10. CABERGOLINE [Concomitant]
     Indication: PARKINSON'S DISEASE
     Dosage: 1 MG, QD
     Route: 048

REACTIONS (1)
  - HALLUCINATION [None]
